FAERS Safety Report 6922694-9 (Version None)
Quarter: 2010Q3

REPORT INFORMATION
  Report Type: 
  Country: None (occurrence: None)
  Receive Date: 20100813
  Receipt Date: 20100803
  Transmission Date: 20110219
  Serious: Yes (Hospitalization)
  Sender: FDA-Public Use
  Company Number: PHHY2010JP51583

PATIENT
  Age: 74 Year
  Sex: Female

DRUGS (3)
  1. FAMVIR [Suspect]
     Indication: HERPES ZOSTER
     Dosage: 500 MG, TID
     Route: 048
     Dates: start: 20100727, end: 20100802
  2. LOXOPROFEN SODIUM [Concomitant]
     Dosage: UNK
     Dates: start: 20100727, end: 20100802
  3. MECOBALAMIN [Concomitant]
     Dosage: UNK
     Dates: start: 20100730, end: 20100802

REACTIONS (6)
  - ABASIA [None]
  - AMNESIA [None]
  - DECREASED APPETITE [None]
  - DISORIENTATION [None]
  - DIZZINESS [None]
  - ENCEPHALOPATHY [None]
